FAERS Safety Report 14998005 (Version 1)
Quarter: 2018Q2

REPORT INFORMATION
  Report Type: Report from Study
  Country: US (occurrence: US)
  Receive Date: 20180611
  Receipt Date: 20180611
  Transmission Date: 20180711
  Serious: Yes (Hospitalization)
  Sender: FDA-Public Use
  Company Number: US-ACTELION-A-US2018-171272

PATIENT
  Age: 73 Year
  Sex: Male

DRUGS (1)
  1. OPSUMIT [Suspect]
     Active Substance: MACITENTAN
     Indication: PRODUCT USED FOR UNKNOWN INDICATION
     Dosage: 10 MG, QD
     Route: 048
     Dates: start: 20180402, end: 20180524

REACTIONS (6)
  - Gait disturbance [Unknown]
  - Epistaxis [Unknown]
  - Dysarthria [Unknown]
  - Blood glucose increased [Unknown]
  - Hypotension [Unknown]
  - Confusional state [Unknown]

NARRATIVE: CASE EVENT DATE: 20180402
